FAERS Safety Report 24396218 (Version 1)
Quarter: 2024Q4

REPORT INFORMATION
  Report Type: Spontaneous
  Country: US (occurrence: None)
  Receive Date: 20241003
  Receipt Date: 20241003
  Transmission Date: 20250114
  Serious: Yes (Other)
  Sender: Public
  Company Number: None

PATIENT
  Age: 71 Year
  Sex: Male

DRUGS (1)
  1. OFEV [Suspect]
     Active Substance: NINTEDANIB
     Indication: Interstitial lung disease
     Dosage: FREQUENCY : TWICE A DAY;?
     Route: 048
     Dates: start: 20240806, end: 20240904

REACTIONS (4)
  - Neurological symptom [None]
  - Aneurysm thrombosis [None]
  - Vascular pseudoaneurysm [None]
  - Brain scan abnormal [None]

NARRATIVE: CASE EVENT DATE: 20241003
